FAERS Safety Report 20245367 (Version 1)
Quarter: 2021Q4

REPORT INFORMATION
  Report Type: Spontaneous
  Country: DE (occurrence: DE)
  Receive Date: 20211229
  Receipt Date: 20211229
  Transmission Date: 20220303
  Serious: Yes (Other)
  Sender: FDA-Public Use
  Company Number: DE-AMGEN-DEUSP2021204519

PATIENT

DRUGS (2)
  1. PEGFILGRASTIM [Suspect]
     Active Substance: PEGFILGRASTIM
     Indication: Allogenic stem cell transplantation
     Dosage: 12 MILLIGRAM (IN THE MORNING OF DAY ONE OF MOBILIZATION)
     Route: 058
  2. FILGRASTIM [Suspect]
     Active Substance: FILGRASTIM
     Indication: Allogenic stem cell transplantation
     Dosage: UNK
     Route: 065

REACTIONS (4)
  - Headache [Unknown]
  - Bone pain [Recovered/Resolved]
  - Therapy partial responder [Unknown]
  - Fatigue [Unknown]
